FAERS Safety Report 14389838 (Version 2)
Quarter: 2018Q1

REPORT INFORMATION
  Report Type: Report from Study
  Country: MX (occurrence: MX)
  Receive Date: 20180115
  Receipt Date: 20180119
  Transmission Date: 20180509
  Serious: Yes (Death, Other)
  Sender: FDA-Public Use
  Company Number: PHHY2018MX003974

PATIENT
  Age: 44 Year
  Sex: Male
  Weight: 80 kg

DRUGS (2)
  1. GLIVEC [Suspect]
     Active Substance: IMATINIB MESYLATE
     Indication: DERMATOFIBROSARCOMA PROTUBERANS
     Dosage: 400 MG, QD
     Route: 065
     Dates: start: 201506, end: 201708
  2. VOTRIENT [Suspect]
     Active Substance: PAZOPANIB HYDROCHLORIDE
     Indication: DERMATOFIBROSARCOMA PROTUBERANS
     Dosage: 2 DF, DAILY((400 MG)
     Route: 048
     Dates: start: 201709, end: 201710

REACTIONS (6)
  - Dermatofibrosarcoma protuberans [Fatal]
  - Decreased immune responsiveness [Unknown]
  - Pseudomonas infection [Unknown]
  - Mouth ulceration [Unknown]
  - Oncologic complication [Unknown]
  - Abdominal discomfort [Unknown]

NARRATIVE: CASE EVENT DATE: 20171005
